FAERS Safety Report 7095931-0 (Version None)
Quarter: 2010Q4

REPORT INFORMATION
  Report Type: 
  Country: None (occurrence: None)
  Receive Date: 20101111
  Receipt Date: 20090410
  Transmission Date: 20110411
  Serious: No
  Sender: FDA-Public Use
  Company Number: US-KINGPHARMUSA00001-K200900431

PATIENT
  Sex: Male
  Weight: 83.9 kg

DRUGS (4)
  1. LEVOXYL [Suspect]
     Indication: AUTOIMMUNE THYROIDITIS
     Dosage: 125 MCG, QD
     Route: 048
  2. LEVOXYL [Suspect]
     Dosage: 150 MCG, QD
     Route: 048
     Dates: start: 20080101
  3. LEVOXYL [Suspect]
     Dosage: UNK MCG, QD
     Route: 048
     Dates: start: 20040101
  4. ARMOUR THYROID [Concomitant]
     Indication: AUTOIMMUNE THYROIDITIS
     Dosage: UNK
     Route: 048

REACTIONS (1)
  - INSOMNIA [None]
